FAERS Safety Report 8382047-6 (Version None)
Quarter: 2012Q2

REPORT INFORMATION
  Report Type: 
  Country: None (occurrence: None)
  Receive Date: 20120523
  Receipt Date: 20120523
  Transmission Date: 20120825
  Serious: Yes (Other)
  Sender: FDA-Public Use
  Company Number: None

PATIENT
  Age: 47 Year
  Sex: Male
  Weight: 67.586 kg

DRUGS (2)
  1. LAMOTRIGINE [Suspect]
     Indication: DEPRESSION
     Dosage: 100 MG ONCE A DAY PO
     Route: 048
     Dates: start: 20111017, end: 20111108
  2. BUPROPION HCL [Suspect]
     Indication: BIPOLAR DISORDER
     Dosage: 150 MG ONCE A DAY PO
     Route: 048
     Dates: start: 20111024, end: 20111108

REACTIONS (6)
  - INSOMNIA [None]
  - MANIA [None]
  - ANXIETY [None]
  - AGITATION [None]
  - DEPRESSION [None]
  - CONDITION AGGRAVATED [None]
